FAERS Safety Report 19450140 (Version 1)
Quarter: 2021Q2

REPORT INFORMATION
  Report Type: Report from Study
  Country: US (occurrence: US)
  Receive Date: 20210622
  Receipt Date: 20210622
  Transmission Date: 20210717
  Serious: Yes (Hospitalization, Other)
  Sender: FDA-Public Use
  Company Number: US-BAYER-2021-136914

PATIENT
  Age: 43 Year
  Sex: Female
  Weight: 120.18 kg

DRUGS (5)
  1. ADEMPAS [Suspect]
     Active Substance: RIOCIGUAT
     Indication: PULMONARY ARTERIAL HYPERTENSION
     Dosage: 2.5 MG, TID
     Route: 048
  2. XARELTO [Suspect]
     Active Substance: RIVAROXABAN
  3. ADEMPAS [Suspect]
     Active Substance: RIOCIGUAT
     Indication: PULMONARY ARTERIAL HYPERTENSION
     Dosage: UNK
     Route: 048
     Dates: start: 20170126
  4. ORENITRAM [Suspect]
     Active Substance: TREPROSTINIL
  5. OPSUMIT [Concomitant]
     Active Substance: MACITENTAN

REACTIONS (7)
  - Ascites [Unknown]
  - Fluid retention [None]
  - Fluid overload [Unknown]
  - Back pain [None]
  - Pulmonary hypertension [None]
  - Hospitalisation [None]
  - Gastric haemorrhage [None]

NARRATIVE: CASE EVENT DATE: 20210429
